FAERS Safety Report 6542806-9 (Version None)
Quarter: 2010Q1

REPORT INFORMATION
  Report Type: 
  Country: None (occurrence: None)
  Receive Date: 20100114
  Receipt Date: 20100104
  Transmission Date: 20100710
  Serious: Yes (Other)
  Sender: FDA-Public Use
  Company Number: 004218

PATIENT
  Sex: Male

DRUGS (6)
  1. KEPPRA [Suspect]
     Indication: CONVULSION
     Dosage: (1500 MG)
  2. EPANUTNI /00017402/ (EPANUTIN) (NOT SPECIFIED) [Suspect]
     Indication: CONVULSION
     Dosage: (25 ML IN THE MORNING AND 30 ML AT NIGHT ORAL)
     Route: 048
  3. NITRAZEPAM [Concomitant]
  4. RUFINAMIDE [Concomitant]
  5. TEGRETOL [Concomitant]
  6. TOPAMAX [Concomitant]

REACTIONS (1)
  - LETHARGY [None]
